FAERS Safety Report 5332229-2 (Version None)
Quarter: 2007Q2

REPORT INFORMATION
  Report Type: 
  Country: None (occurrence: None)
  Receive Date: 20070523
  Receipt Date: 20070516
  Transmission Date: 20071010
  Serious: Yes (Life-Threatening, Hospitalization, Other)
  Sender: FDA-Public Use
  Company Number: HQWYE875326APR07

PATIENT
  Age: 94 Year
  Sex: Female

DRUGS (9)
  1. CORDARONE [Suspect]
     Indication: ATRIAL FIBRILLATION
     Dosage: 200 MG DAILY 5 TIMES PER WEEK
     Route: 048
     Dates: end: 20070214
  2. CORDARONE [Suspect]
     Indication: ATRIAL FLUTTER
  3. DEROXAT [Concomitant]
     Indication: DYSTHYMIC DISORDER
     Route: 048
     Dates: end: 20070214
  4. HEMIGOXINE NATIVELLE [Concomitant]
     Indication: ATRIAL FIBRILLATION
     Route: 048
     Dates: end: 20070214
  5. HEMIGOXINE NATIVELLE [Concomitant]
     Indication: ATRIAL FLUTTER
  6. LASIX [Concomitant]
     Indication: ATRIAL FIBRILLATION
     Route: 048
     Dates: end: 20070214
  7. LASIX [Concomitant]
     Indication: ATRIAL FLUTTER
  8. DEPAKENE [Suspect]
     Indication: EPILEPSY
     Route: 048
     Dates: end: 20070210
  9. IMOVANE [Concomitant]
     Route: 048
     Dates: end: 20070214

REACTIONS (5)
  - CACHEXIA [None]
  - COMMUNICATION DISORDER [None]
  - PARTIAL SEIZURES [None]
  - SOMNOLENCE [None]
  - THROMBOCYTOPENIA [None]
